FAERS Safety Report 10094043 (Version 3)
Quarter: 2014Q2

REPORT INFORMATION
  Report Type: Report from Study
  Country: JP (occurrence: JP)
  Receive Date: 20140422
  Receipt Date: 20140617
  Transmission Date: 20141212
  Serious: Yes (Hospitalization)
  Sender: FDA-Public Use
  Company Number: JP-ROCHE-1382322

PATIENT
  Age: 76 Year
  Sex: Female

DRUGS (16)
  1. METHOXY POLYETHYLENE GLYCOL-EPOETIN BETA [Suspect]
     Indication: NEPHROGENIC ANAEMIA
     Route: 058
     Dates: start: 20130806, end: 20130806
  2. METHOXY POLYETHYLENE GLYCOL-EPOETIN BETA [Suspect]
     Indication: NEPHROGENIC ANAEMIA
     Route: 058
     Dates: start: 20130903, end: 20130903
  3. JANUVIA [Concomitant]
     Route: 048
  4. RECALBON [Concomitant]
     Route: 048
  5. HUMALOG [Concomitant]
     Route: 058
  6. HUMULIN N [Concomitant]
     Route: 058
  7. FERROMIA [Concomitant]
     Route: 048
  8. VASOLAN [Concomitant]
     Route: 048
  9. EPADEL [Concomitant]
     Route: 048
  10. ZETIA [Concomitant]
     Route: 048
  11. PREMINENT [Concomitant]
     Route: 048
  12. BAYASPIRIN [Concomitant]
     Route: 048
  13. PLAVIX [Concomitant]
     Route: 048
  14. CARDENALIN [Concomitant]
     Route: 048
  15. NIFEDIPINE LA [Concomitant]
     Route: 048
  16. ADALAT [Concomitant]
     Route: 048

REACTIONS (2)
  - Cardiac failure congestive [Recovered/Resolved]
  - Hypertension [Unknown]
